FAERS Safety Report 5394618-X (Version None)
Quarter: 2007Q3

REPORT INFORMATION
  Report Type: 
  Country: None (occurrence: None)
  Receive Date: 20070723
  Receipt Date: 20070712
  Transmission Date: 20080115
  Serious: Yes (Life-Threatening, Hospitalization, Other)
  Sender: FDA-Public Use
  Company Number: US-PFIZER INC-2007027865

PATIENT
  Sex: Male
  Weight: 63.5 kg

DRUGS (1)
  1. CELEBREX [Suspect]
     Indication: BACK INJURY
     Dates: start: 19991201, end: 20010501

REACTIONS (2)
  - CARDIOVASCULAR DISORDER [None]
  - MYOCARDIAL INFARCTION [None]
